FAERS Safety Report 19483094 (Version 19)
Quarter: 2022Q2

REPORT INFORMATION
  Report Type: Report from Study
  Country: CA (occurrence: CA)
  Receive Date: 20210701
  Receipt Date: 20220609
  Transmission Date: 20220721
  Serious: Yes (Other)
  Sender: FDA-Public Use
  Company Number: CA-TAKEDA-CA202025671

PATIENT
  Age: 25 Year
  Sex: Male
  Weight: 90 kg

DRUGS (16)
  1. IDURSULFASE [Suspect]
     Active Substance: IDURSULFASE
     Indication: Mucopolysaccharidosis II
     Dosage: 42 MILLIGRAM, 1/WEEK
     Route: 065
     Dates: start: 20090401
  2. IDURSULFASE [Suspect]
     Active Substance: IDURSULFASE
     Dosage: 7 DOSAGE FORM, 1/WEEK
     Route: 065
     Dates: start: 20090401
  3. IDURSULFASE [Suspect]
     Active Substance: IDURSULFASE
     Dosage: 7 DOSAGE FORM, 1/WEEK
     Route: 065
     Dates: start: 20090401
  4. IDURSULFASE [Suspect]
     Active Substance: IDURSULFASE
     Dosage: 7 DOSAGE FORM, 1/WEEK
     Route: 065
     Dates: start: 20090401
  5. IDURSULFASE [Suspect]
     Active Substance: IDURSULFASE
     Dosage: 7 DOSAGE FORM, 1/WEEK
     Route: 065
     Dates: start: 20090401
  6. IDURSULFASE [Suspect]
     Active Substance: IDURSULFASE
     Dosage: 7 DOSAGE FORM, 1/WEEK
     Route: 065
     Dates: start: 20090401
  7. IDURSULFASE [Suspect]
     Active Substance: IDURSULFASE
     Dosage: 7 DOSAGE FORM, 1/WEEK
     Route: 065
     Dates: start: 20190401
  8. IDURSULFASE [Suspect]
     Active Substance: IDURSULFASE
     Dosage: 7 DOSAGE FORM, 1/WEEK
     Route: 065
  9. IDURSULFASE [Suspect]
     Active Substance: IDURSULFASE
     Dosage: 7 DOSAGE FORM, 1/WEEK
     Route: 065
     Dates: start: 20190401
  10. IDURSULFASE [Suspect]
     Active Substance: IDURSULFASE
     Dosage: 7 DOSAGE FORM, 1/WEEK
     Route: 065
     Dates: start: 20090401
  11. IDURSULFASE [Suspect]
     Active Substance: IDURSULFASE
     Dosage: 7 DOSAGE FORM, 1/WEEK
     Route: 065
     Dates: start: 20090401
  12. IDURSULFASE [Suspect]
     Active Substance: IDURSULFASE
     Dosage: 7 DOSAGE FORM, 1/WEEK
     Route: 065
     Dates: start: 20090401
  13. IDURSULFASE [Suspect]
     Active Substance: IDURSULFASE
     Dosage: 7 DOSAGE FORM, 1/WEEK
     Route: 065
     Dates: start: 20090401
  14. IDURSULFASE [Suspect]
     Active Substance: IDURSULFASE
     Dosage: 7 DOSAGE FORM, 1/WEEK
     Route: 065
     Dates: start: 20090401
  15. IDURSULFASE [Suspect]
     Active Substance: IDURSULFASE
     Dosage: 7 DOSAGE FORM, 1/WEEK
     Route: 050
     Dates: start: 20090401
  16. IDURSULFASE [Suspect]
     Active Substance: IDURSULFASE
     Dosage: 7 DOSAGE FORM, 1/WEEK
     Route: 050
     Dates: start: 20090401

REACTIONS (22)
  - Depression [Not Recovered/Not Resolved]
  - Somnolence [Unknown]
  - Hypoaesthesia [Unknown]
  - Blood pressure increased [Unknown]
  - Heart rate increased [Recovered/Resolved]
  - Unevaluable event [Unknown]
  - Eye infection [Not Recovered/Not Resolved]
  - Body temperature decreased [Recovered/Resolved]
  - Decreased appetite [Unknown]
  - Road traffic accident [Not Recovered/Not Resolved]
  - Pain [Not Recovered/Not Resolved]
  - Mental disorder [Not Recovered/Not Resolved]
  - Fatigue [Unknown]
  - Dizziness [Unknown]
  - Infusion related reaction [Unknown]
  - Poor venous access [Recovered/Resolved]
  - COVID-19 [Recovered/Resolved]
  - Weight increased [Unknown]
  - Therapy interrupted [Unknown]
  - Medication error [Unknown]
  - Product dose omission issue [Recovered/Resolved]
  - Inappropriate schedule of product administration [Unknown]

NARRATIVE: CASE EVENT DATE: 20200805
